FAERS Safety Report 21481217 (Version 2)
Quarter: 2022Q4

REPORT INFORMATION
  Report Type: Report from Study
  Country: US (occurrence: US)
  Receive Date: 20221019
  Receipt Date: 20221024
  Transmission Date: 20230113
  Serious: Yes (Other)
  Sender: FDA-Public Use
  Company Number: US-GILEAD-2022-0601886

PATIENT
  Age: 69 Year
  Sex: Female

DRUGS (6)
  1. AZTREONAM LYSINE [Suspect]
     Active Substance: AZTREONAM LYSINE
     Indication: Bacterial disease carrier
     Dosage: 75 MG, TID, 14 ON AND 14 OFF
     Route: 055
     Dates: start: 20210719
  2. AZTREONAM LYSINE [Suspect]
     Active Substance: AZTREONAM LYSINE
     Indication: Cystic fibrosis
  3. SODIUM CHLORIDE [Concomitant]
     Active Substance: SODIUM CHLORIDE
  4. LEVALBUTEROL [Concomitant]
     Active Substance: LEVALBUTEROL
  5. LASIX [Concomitant]
     Active Substance: FUROSEMIDE
  6. MIDODRINE [Concomitant]
     Active Substance: MIDODRINE

REACTIONS (4)
  - Loss of consciousness [Unknown]
  - Hypotension [Not Recovered/Not Resolved]
  - Head injury [Unknown]
  - Off label use [Not Recovered/Not Resolved]
